FAERS Safety Report 4699603-9 (Version None)
Quarter: 2005Q2

REPORT INFORMATION
  Report Type: 
  Country: None (occurrence: None)
  Receive Date: 20050623
  Receipt Date: 20050614
  Transmission Date: 20051028
  Serious: Yes (Other)
  Sender: FDA-Public Use
  Company Number: 2005089177

PATIENT
  Age: 25 Year
  Sex: Female
  Weight: 160 kg

DRUGS (1)
  1. DEPO-PROVERA [Suspect]
     Indication: CONTRACEPTION
     Dosage: 150 MG (150 MG,1ST INJECTION, EVERY10-13 WEEKS),INTRAMUSCULAR
     Route: 030
     Dates: start: 20031103, end: 20031103

REACTIONS (2)
  - METRORRHAGIA [None]
  - SMEAR CERVIX ABNORMAL [None]
